FAERS Safety Report 5367020-4 (Version None)
Quarter: 2007Q2

REPORT INFORMATION
  Report Type: 
  Country: None (occurrence: None)
  Receive Date: 20070619
  Receipt Date: 20070619
  Transmission Date: 20071010
  Serious: Yes (Life-Threatening, Hospitalization, Disabling, Other)
  Sender: FDA-Public Use
  Company Number: None

PATIENT
  Age: 66 Year
  Sex: Female
  Weight: 63.5036 kg

DRUGS (1)
  1. ACTOS [Suspect]
     Indication: DIABETES MELLITUS
     Dosage: 45 1X/DAY

REACTIONS (7)
  - ANGINA PECTORIS [None]
  - ASTHMA [None]
  - CAROTID ARTERY STENT INSERTION [None]
  - CHILLS [None]
  - CORONARY ARTERY OCCLUSION [None]
  - FEELING ABNORMAL [None]
  - FEELING COLD [None]
